FAERS Safety Report 17266113 (Version 1)
Quarter: 2020Q1

REPORT INFORMATION
  Report Type: Spontaneous
  Country: IT (occurrence: IT)
  Receive Date: 20200114
  Receipt Date: 20200114
  Transmission Date: 20200409
  Serious: Yes (Other)
  Sender: FDA-Public Use
  Company Number: IT-SUN PHARMACEUTICAL INDUSTRIES LTD-2019R1-210842

PATIENT
  Age: 33 Year
  Sex: Female

DRUGS (4)
  1. MYCOPHENOLATE MOFETIL. [Suspect]
     Active Substance: MYCOPHENOLATE MOFETIL
     Indication: SYSTEMIC LUPUS ERYTHEMATOSUS
     Dosage: 2 GRAM, DAILY
     Route: 065
     Dates: start: 200511
  2. MUPIROCIN. [Concomitant]
     Active Substance: MUPIROCIN
     Indication: SKIN LESION
     Dosage: UNK
     Route: 003
  3. MINOCYCLINE [Suspect]
     Active Substance: MINOCYCLINE HYDROCHLORIDE
     Indication: SKIN LESION
     Dosage: 100 MILLIGRAM, DAILY
     Route: 065
  4. MYCOPHENOLATE MOFETIL. [Suspect]
     Active Substance: MYCOPHENOLATE MOFETIL
     Indication: RETINAL VASCULITIS

REACTIONS (4)
  - Acne [Recovered/Resolved]
  - Staphylococcal skin infection [Recovered/Resolved]
  - Dizziness [Unknown]
  - Skin lesion [Recovered/Resolved]
